FAERS Safety Report 20924974 (Version 1)
Quarter: 2022Q2

REPORT INFORMATION
  Report Type: Report from Study
  Country: US (occurrence: US)
  Receive Date: 20220607
  Receipt Date: 20220607
  Transmission Date: 20220720
  Serious: Yes (Death, Other)
  Sender: FDA-Public Use
  Company Number: US-BAUSCH-BL-2019-014913

PATIENT
  Age: 82 Year
  Sex: Male
  Weight: 69.916 kg

DRUGS (3)
  1. ZELAPAR [Suspect]
     Active Substance: SELEGILINE HYDROCHLORIDE
     Indication: Parkinson^s disease
     Dosage: MORNING
     Route: 048
     Dates: start: 20190424, end: 201904
  2. ZELAPAR [Suspect]
     Active Substance: SELEGILINE HYDROCHLORIDE
     Route: 065
     Dates: end: 20211223
  3. ZELAPAR [Suspect]
     Active Substance: SELEGILINE HYDROCHLORIDE
     Route: 048

REACTIONS (8)
  - Death [Fatal]
  - Dementia [Not Recovered/Not Resolved]
  - Musculoskeletal stiffness [Not Recovered/Not Resolved]
  - Mobility decreased [Not Recovered/Not Resolved]
  - Gait disturbance [Not Recovered/Not Resolved]
  - Mental disorder [Not Recovered/Not Resolved]
  - Therapy cessation [Unknown]
  - Therapy interrupted [Unknown]

NARRATIVE: CASE EVENT DATE: 20190401
